FAERS Safety Report 10535052 (Version 1)
Quarter: 2014Q4

REPORT INFORMATION
  Report Type: Spontaneous
  Country: US (occurrence: US)
  Receive Date: 20141022
  Receipt Date: 20141022
  Transmission Date: 20150529
  Serious: No
  Sender: FDA-Public Use
  Company Number: US-ASTRAZENECA-2014SE14439

PATIENT
  Age: 41 Year
  Sex: Female

DRUGS (2)
  1. CRESTOR [Suspect]
     Active Substance: ROSUVASTATIN CALCIUM
     Indication: BLOOD CHOLESTEROL INCREASED
     Route: 048
     Dates: start: 201312
  2. UNSPECIFIED MEDICATION FOR CROHNS [Concomitant]
     Indication: CROHN^S DISEASE
     Dosage: UNKNOWN UNK

REACTIONS (1)
  - Anorgasmia [Unknown]

NARRATIVE: CASE EVENT DATE: 201312
